FAERS Safety Report 9748943 (Version 3)
Quarter: 2014Q2

REPORT INFORMATION
  Report Type: Spontaneous
  Country: US (occurrence: US)
  Receive Date: 20131212
  Receipt Date: 20140611
  Transmission Date: 20141212
  Serious: No
  Sender: FDA-Public Use
  Company Number: US-INCYTE CORPORATION-2013IN000661

PATIENT
  Sex: Male
  Weight: 99.77 kg

DRUGS (5)
  1. JAKAFI [Suspect]
     Indication: POLYCYTHAEMIA VERA
     Dosage: 10 MG, BID
     Route: 048
     Dates: start: 20121204
  2. AMLODIPINE BESYLATE [Concomitant]
  3. ATORVASTATIN [Concomitant]
  4. ECOTRIN [Concomitant]
  5. GLIMEPIRIDE [Concomitant]

REACTIONS (5)
  - Increased appetite [Not Recovered/Not Resolved]
  - Alopecia [Not Recovered/Not Resolved]
  - Weight increased [Unknown]
  - Headache [Unknown]
  - Dizziness [Unknown]
